FAERS Safety Report 8188782-7 (Version None)
Quarter: 2012Q1

REPORT INFORMATION
  Report Type: 
  Country: None (occurrence: None)
  Receive Date: 20120306
  Receipt Date: 20120302
  Transmission Date: 20120608
  Serious: Yes (Other)
  Sender: FDA-Public Use
  Company Number: GB-B.I. PHARMACEUTICALS,INC./RIDGEFIELD-2012-UK-00324UK

PATIENT
  Age: 77 Year
  Sex: Female
  Weight: 97 kg

DRUGS (10)
  1. ASPIRIN [Concomitant]
  2. RABEPRAZOLE SODIUM [Concomitant]
  3. PERSANTIN [Concomitant]
  4. QUININE SULFATE [Concomitant]
  5. EZETIMIBE [Concomitant]
  6. TRAJENTA [Suspect]
     Indication: DIABETES MELLITUS
     Dosage: 5 MG
     Route: 048
     Dates: start: 20111223, end: 20120213
  7. DOXAZOSIN MESYLATE [Concomitant]
  8. FOLIC ACID [Concomitant]
  9. FUROSEMIDE [Concomitant]
  10. ISMN [Concomitant]

REACTIONS (2)
  - COGWHEEL RIGIDITY [None]
  - INTENTION TREMOR [None]
